FAERS Safety Report 5055998-8 (Version None)
Quarter: 2006Q3

REPORT INFORMATION
  Report Type: 
  Country: None (occurrence: None)
  Receive Date: 20060720
  Receipt Date: 20060707
  Transmission Date: 20061208
  Serious: Yes (Hospitalization)
  Sender: FDA-Public Use
  Company Number: JP-BRISTOL-MYERS SQUIBB COMPANY-13442710

PATIENT
  Age: 64 Year
  Sex: Male

DRUGS (3)
  1. EFAVIRENZ [Suspect]
     Indication: HIV INFECTION
     Dosage: 600 MG DAILY FROM 13-FEB-2001 TO 05-APR-2005 THEN DECREASED TO 400 MG DAILY ON 06-APR-2005
     Route: 048
     Dates: start: 20010213
  2. RETROVIR [Suspect]
     Indication: HIV INFECTION
     Dosage: GIVEN: 06-JAN-2000 TO 17-JAN-2000, 13-FEB-2001 TO 06-DEC-2005, 12-JAN-2006 TO CONT.
     Route: 048
     Dates: start: 20000106
  3. EPIVIR [Suspect]
     Indication: HIV INFECTION
     Dosage: GIVEN: SEP-1999 TO 06-DEC-2005, 12-JAN-2006 TO CONT.
     Route: 048
     Dates: start: 19990901

REACTIONS (1)
  - CEREBRAL INFARCTION [None]
